FAERS Safety Report 13670975 (Version 1)
Quarter: 2017Q2

REPORT INFORMATION
  Report Type: Spontaneous
  Country: US (occurrence: US)
  Receive Date: 20170620
  Receipt Date: 20170620
  Transmission Date: 20170830
  Serious: No
  Sender: FDA-Public Use
  Company Number: US-ROCHE-1514736

PATIENT
  Sex: Female

DRUGS (13)
  1. XELODA [Suspect]
     Active Substance: CAPECITABINE
     Dosage: BID FOR 2 WEEKS
     Route: 048
     Dates: start: 20140130
  2. ALBUTEROL. [Concomitant]
     Active Substance: ALBUTEROL
     Route: 065
  3. XELODA [Suspect]
     Active Substance: CAPECITABINE
     Dosage: BID FOR 2 WEEKS
     Route: 048
     Dates: start: 20140130
  4. LORAZEPAM. [Concomitant]
     Active Substance: LORAZEPAM
     Route: 065
  5. TAMOXIFEN [Concomitant]
     Active Substance: TAMOXIFEN
  6. PANTOPRAZOLE [Concomitant]
     Active Substance: PANTOPRAZOLE
     Route: 065
  7. OLANZAPINE. [Concomitant]
     Active Substance: OLANZAPINE
  8. DIPHENOXYLATE/ATROPINE [Concomitant]
     Active Substance: ATROPINE\DIPHENOXYLATE
     Route: 065
     Dates: end: 20150119
  9. LEVOTHYROXINE. [Concomitant]
     Active Substance: LEVOTHYROXINE
     Route: 065
  10. DIVALPROEX [Concomitant]
     Active Substance: DIVALPROEX SODIUM
     Route: 065
     Dates: start: 20141022
  11. CYCLOPHOSPHAMIDE. [Concomitant]
     Active Substance: CYCLOPHOSPHAMIDE
     Route: 065
  12. XELODA [Suspect]
     Active Substance: CAPECITABINE
     Indication: NEOPLASM
     Dosage: BID X 14
     Route: 048
     Dates: start: 20140130
  13. XELODA [Suspect]
     Active Substance: CAPECITABINE
     Indication: BREAST CANCER
     Dosage: BID X 14
     Route: 048
     Dates: start: 20140130

REACTIONS (4)
  - Diarrhoea [Recovering/Resolving]
  - Skin fissures [Not Recovered/Not Resolved]
  - Constipation [Recovering/Resolving]
  - Ill-defined disorder [Recovering/Resolving]
